FAERS Safety Report 4630577-2 (Version None)
Quarter: 2005Q2

REPORT INFORMATION
  Report Type: 
  Country: None (occurrence: None)
  Receive Date: 20050408
  Receipt Date: 20041029
  Transmission Date: 20051028
  Serious: Yes (Hospitalization, Other)
  Sender: FDA-Public Use
  Company Number: US-MERCK-0411USA00451

PATIENT
  Age: 73 Year
  Sex: Male

DRUGS (18)
  1. ZOCOR [Suspect]
     Route: 048
     Dates: start: 20011018, end: 20020518
  2. HUMULIN N [Concomitant]
     Route: 058
     Dates: end: 20020519
  3. AVANDIA [Concomitant]
     Route: 065
     Dates: end: 20020519
  4. COVERA-HS [Concomitant]
     Route: 065
     Dates: end: 20020501
  5. COVERA-HS [Concomitant]
     Route: 065
     Dates: start: 20020526
  6. CARDURA [Concomitant]
     Route: 065
     Dates: end: 20020519
  7. CLONIDINE [Concomitant]
     Route: 065
     Dates: end: 20020501
  8. CLONIDINE [Concomitant]
     Route: 065
     Dates: start: 20020526
  9. PREVACID [Concomitant]
     Route: 048
     Dates: end: 20020519
  10. PREVACID [Concomitant]
     Route: 048
     Dates: start: 20020526
  11. MODURETIC 5-50 [Concomitant]
     Route: 048
     Dates: end: 20020519
  12. MODURETIC 5-50 [Concomitant]
     Route: 048
     Dates: start: 20020526
  13. FLUOXYMESTERONE [Concomitant]
     Route: 065
     Dates: end: 20020519
  14. ASPIRIN [Concomitant]
     Route: 065
     Dates: end: 20020501
  15. ASPIRIN [Concomitant]
     Route: 065
     Dates: start: 20020526
  16. ACETAMINOPHEN [Concomitant]
     Route: 065
     Dates: end: 20020519
  17. FLONASE [Concomitant]
     Route: 055
     Dates: end: 20020519
  18. GEMFIBROZIL [Suspect]
     Route: 065
     Dates: end: 20020519

REACTIONS (15)
  - ARTERIOSPASM CORONARY [None]
  - BLOOD TESTOSTERONE DECREASED [None]
  - CORONARY ARTERY ATHEROSCLEROSIS [None]
  - DEPRESSION [None]
  - DIABETIC GASTROPARESIS [None]
  - DIVERTICULUM [None]
  - DYSPNOEA EXERTIONAL [None]
  - HALO VISION [None]
  - INTERVERTEBRAL DISC PROTRUSION [None]
  - MYOSITIS [None]
  - OEDEMA PERIPHERAL [None]
  - RASH PRURITIC [None]
  - RHABDOMYOLYSIS [None]
  - TRANSIENT ISCHAEMIC ATTACK [None]
  - UPPER RESPIRATORY TRACT INFECTION [None]
